FAERS Safety Report 5237276-7 (Version None)
Quarter: 2007Q1

REPORT INFORMATION
  Report Type: 
  Country: None (occurrence: None)
  Receive Date: 20070213
  Receipt Date: 20070208
  Transmission Date: 20070707
  Serious: Yes (Disabling)
  Sender: FDA-Public Use
  Company Number: 2006AP04750

PATIENT
  Age: 553 Month
  Sex: Female
  Weight: 43 kg

DRUGS (3)
  1. ZOLADEX [Suspect]
     Indication: BREAST CANCER
     Route: 058
     Dates: start: 20050826, end: 20060726
  2. NOLVADEX [Suspect]
     Indication: BREAST CANCER
     Route: 048
     Dates: start: 20050701, end: 20060730
  3. RADIOTHERAPY [Concomitant]
     Indication: BREAST CANCER
     Dosage: 50 GY
     Dates: start: 20050708, end: 20050817

REACTIONS (1)
  - DEPRESSION [None]
